FAERS Safety Report 11693144 (Version 1)
Quarter: 2015Q4

REPORT INFORMATION
  Report Type: Spontaneous
  Country: US (occurrence: US)
  Receive Date: 20151103
  Receipt Date: 20151103
  Transmission Date: 20160304
  Serious: Yes (Hospitalization, Other)
  Sender: FDA-Public Use
  Company Number: US-ELI_LILLY_AND_COMPANY-US201510007696

PATIENT
  Sex: Male

DRUGS (4)
  1. ZOCOR [Concomitant]
     Active Substance: SIMVASTATIN
  2. ASPIRIN                            /00002701/ [Concomitant]
     Active Substance: ASPIRIN
     Dosage: 80 MG, UNKNOWN
  3. HUMULIN 70/30 [Suspect]
     Active Substance: INSULIN HUMAN
     Indication: TYPE 1 DIABETES MELLITUS
     Dosage: UNK
     Route: 065
     Dates: start: 1997, end: 2011
  4. INSULIN HUMAN [Suspect]
     Active Substance: INSULIN HUMAN
     Indication: TYPE 1 DIABETES MELLITUS
     Dosage: UNK
     Route: 065
     Dates: start: 1997, end: 2011

REACTIONS (13)
  - Transient ischaemic attack [Unknown]
  - Diabetic neuropathy [Unknown]
  - Asbestosis [Unknown]
  - Dizziness [Unknown]
  - Blood glucose abnormal [Unknown]
  - Hypoaesthesia [Unknown]
  - Cardiac disorder [Unknown]
  - Asthma [Unknown]
  - Hemiplegia [Unknown]
  - Hypoacusis [Unknown]
  - Pain [Not Recovered/Not Resolved]
  - Transient ischaemic attack [Unknown]
  - Movement disorder [Unknown]

NARRATIVE: CASE EVENT DATE: 2006
